FAERS Safety Report 20719421 (Version 1)
Quarter: 2022Q2

REPORT INFORMATION
  Report Type: Report from Study
  Country: CZ (occurrence: CZ)
  Receive Date: 20220418
  Receipt Date: 20220418
  Transmission Date: 20220721
  Serious: Yes (Hospitalization, Other)
  Sender: FDA-Public Use
  Company Number: CZ-NOVARTISPH-NVSC2022CZ080021

PATIENT
  Age: 0 Year
  Sex: Male
  Weight: 77 kg

DRUGS (1)
  1. TRAMETINIB [Suspect]
     Active Substance: TRAMETINIB
     Indication: Astrocytoma
     Dosage: 0.24 MG
     Route: 048
     Dates: start: 20210916, end: 20220403

REACTIONS (11)
  - Sepsis [Not Recovered/Not Resolved]
  - Hyponatraemia [Not Recovered/Not Resolved]
  - Cyanosis [Unknown]
  - Pyrexia [Unknown]
  - Chills [Unknown]
  - Hypotension [Unknown]
  - Leukopenia [Unknown]
  - Cachexia [Not Recovered/Not Resolved]
  - C-reactive protein increased [Unknown]
  - White blood cell count increased [Unknown]
  - COVID-19 [Recovered/Resolved]

NARRATIVE: CASE EVENT DATE: 20210916
